FAERS Safety Report 6263074-1 (Version None)
Quarter: 2009Q3

REPORT INFORMATION
  Report Type: 
  Country: None (occurrence: None)
  Receive Date: 20090708
  Receipt Date: 20090708
  Transmission Date: 20100115
  Serious: No
  Sender: FDA-Public Use
  Company Number: None

PATIENT
  Sex: Male
  Weight: 86.1834 kg

DRUGS (2)
  1. NOVARTIS, BENEFIBER WITH CALCIUM [Suspect]
     Indication: FAECES HARD
     Dosage: TABLESPOON ONE/DAY MOUTH
     Route: 048
     Dates: start: 20090620
  2. NOVARTIS, BENEFIBER WITH CALCIUM [Suspect]
     Indication: FAECES HARD
     Dosage: TABLESPOON ONE/DAY MOUTH
     Route: 048
     Dates: start: 20090621

REACTIONS (4)
  - DYSGEUSIA [None]
  - GASTROINTESTINAL DISORDER [None]
  - NAUSEA [None]
  - PRODUCT SOLUBILITY ABNORMAL [None]
